FAERS Safety Report 19701178 (Version 2)
Quarter: 2021Q3

REPORT INFORMATION
  Report Type: Spontaneous
  Country: US (occurrence: US)
  Receive Date: 20210813
  Receipt Date: 20210908
  Transmission Date: 20211014
  Serious: Yes (Death, Hospitalization)
  Sender: FDA-Public Use
  Company Number: US-ROCHE-2890147

PATIENT
  Sex: Male

DRUGS (1)
  1. XOLAIR [Suspect]
     Active Substance: OMALIZUMAB
     Indication: IDIOPATHIC URTICARIA
     Dosage: ONGOING: YES
     Route: 058
     Dates: start: 202107

REACTIONS (6)
  - Tachycardia [Unknown]
  - Dyspnoea [Unknown]
  - Bronchiectasis [Unknown]
  - Hypotension [Unknown]
  - Death [Fatal]
  - Atrial fibrillation [Unknown]
